FAERS Safety Report 18660438 (Version 1)
Quarter: 2020Q4

REPORT INFORMATION
  Report Type: Spontaneous
  Country: US (occurrence: US)
  Receive Date: 20201223
  Receipt Date: 20201223
  Transmission Date: 20210114
  Serious: No
  Sender: FDA-Public Use
  Company Number: US-LUPIN PHARMACEUTICALS INC.-2020-02934

PATIENT
  Age: 82 Year
  Sex: Female
  Weight: 91 kg

DRUGS (4)
  1. AMLODIPINE [Concomitant]
     Active Substance: AMLODIPINE BESYLATE
     Indication: BLOOD PRESSURE ABNORMAL
     Dosage: UNK
     Route: 048
  2. T/SAL [Concomitant]
     Indication: PSORIASIS
     Dosage: UNK (SHAMPOO HAIR EVERY 3 DAYS)
     Route: 061
  3. CLOBETASOL PROPIONATE TOPICAL SOLUTION USP, 0.05 % [Suspect]
     Active Substance: CLOBETASOL PROPIONATE
     Dosage: 0.05 PERCENT, QD
     Route: 061
     Dates: start: 20200605
  4. CLOBETASOL PROPIONATE TOPICAL SOLUTION USP, 0.05 % [Suspect]
     Active Substance: CLOBETASOL PROPIONATE
     Indication: PSORIASIS
     Dosage: 0.05 PERCENT, BID
     Route: 061
     Dates: start: 20200521

REACTIONS (3)
  - Off label use [Unknown]
  - Intentional product use issue [Unknown]
  - Joint swelling [Not Recovered/Not Resolved]

NARRATIVE: CASE EVENT DATE: 20200605
